FAERS Safety Report 14287278 (Version 1)
Quarter: 2017Q4

REPORT INFORMATION
  Report Type: Spontaneous
  Country: US (occurrence: US)
  Receive Date: 20171214
  Receipt Date: 20171214
  Transmission Date: 20180321
  Serious: No
  Sender: FDA-Public Use
  Company Number: US-B.I. PHARMACEUTICALS,INC./RIDGEFIELD-2017-BI-065835

PATIENT
  Sex: Female

DRUGS (1)
  1. COMBIVENT [Suspect]
     Active Substance: ALBUTEROL SULFATE\IPRATROPIUM BROMIDE
     Indication: PRODUCT USED FOR UNKNOWN INDICATION
     Dosage: ONE PUFF 4 TIMES PER DAY;STGNTH 20 MCG/100MCG;FORM:INHALATION SPRAY ,ACTION TAKEN:DRUG WITHDRAWN
     Route: 055
     Dates: end: 2017

REACTIONS (1)
  - Drug effect incomplete [Unknown]
